FAERS Safety Report 7463098-2 (Version None)
Quarter: 2011Q2

REPORT INFORMATION
  Report Type: 
  Country: None (occurrence: None)
  Receive Date: 20110506
  Receipt Date: 20110503
  Transmission Date: 20111010
  Serious: Yes (Death)
  Sender: FDA-Public Use
  Company Number: MX-SANOFI-AVENTIS-2011SA027432

PATIENT
  Age: 77 Year
  Sex: Female

DRUGS (2)
  1. PLAVIX [Suspect]
     Route: 048
     Dates: end: 20110301
  2. ALL OTHER THERAPEUTIC PRODUCTS [Concomitant]

REACTIONS (1)
  - CARDIAC DISORDER [None]
